FAERS Safety Report 14047043 (Version 4)
Quarter: 2019Q2

REPORT INFORMATION
  Report Type: Spontaneous
  Country: JP (occurrence: JP)
  Receive Date: 20171005
  Receipt Date: 20190603
  Transmission Date: 20190711
  Serious: Yes (Other)
  Sender: FDA-Public Use
  Company Number: JP-ELI_LILLY_AND_COMPANY-JP201709011503AA

PATIENT
  Age: 54 Year
  Sex: Female

DRUGS (6)
  1. AVASTIN [Suspect]
     Active Substance: BEVACIZUMAB
     Indication: RECTAL CANCER
     Dosage: 260 MG, UNK
     Route: 041
     Dates: start: 20140815, end: 20160927
  2. COCARL [Concomitant]
     Active Substance: ACETAMINOPHEN
  3. IRINOTECAN [Concomitant]
     Active Substance: IRINOTECAN
     Indication: RECTAL CANCER
     Dosage: 270 MG, UNK
     Route: 041
     Dates: start: 20140815, end: 20160928
  4. CYRAMZA [Suspect]
     Active Substance: RAMUCIRUMAB
     Indication: RECTAL CANCER
     Dosage: UNK
     Route: 041
     Dates: start: 20160928, end: 20160928
  5. DECADRON [Concomitant]
     Active Substance: DEXAMETHASONE
  6. 5-FU                               /00098801/ [Concomitant]
     Active Substance: FLUOROURACIL
     Indication: RECTAL CANCER
     Dosage: 3650 MG, UNK
     Dates: start: 20140815, end: 20160928

REACTIONS (1)
  - Thrombotic microangiopathy [Recovered/Resolved]

NARRATIVE: CASE EVENT DATE: 20161012
